FAERS Safety Report 25538940 (Version 1)
Quarter: 2025Q3

REPORT INFORMATION
  Report Type: Other
  Country: EU (occurrence: EU)
  Receive Date: 20250710
  Receipt Date: 20250710
  Transmission Date: 20251021
  Serious: Yes (Disabling)
  Sender: GLENMARK
  Company Number: None

PATIENT
  Sex: Female
  Weight: 61 kg

DRUGS (2)
  1. RYALTRIS [Suspect]
     Active Substance: MOMETASONE FUROATE MONOHYDRATE\OLOPATADINE HYDROCHLORIDE
     Indication: Allergic sinusitis
     Dosage: 1 DOSAGE FORM, BID (1 SPRAY IN EACH NOSTRIL 2X/DAY
     Route: 045
     Dates: start: 20250609
  2. RYALTRIS [Suspect]
     Active Substance: MOMETASONE FUROATE MONOHYDRATE\OLOPATADINE HYDROCHLORIDE
     Route: 045
     Dates: end: 20250616

REACTIONS (3)
  - Nausea [Recovering/Resolving]
  - Fatigue [Recovering/Resolving]
  - Somnolence [Recovering/Resolving]

NARRATIVE: CASE EVENT DATE: 20250610
